FAERS Safety Report 7827448-7 (Version None)
Quarter: 2011Q4

REPORT INFORMATION
  Report Type: 
  Country: None (occurrence: None)
  Receive Date: 20111020
  Receipt Date: 20110915
  Transmission Date: 20120403
  Serious: Yes (Hospitalization)
  Sender: FDA-Public Use
  Company Number: AR-ROCHE-GNE324013

PATIENT
  Sex: Male

DRUGS (2)
  1. LUCENTIS [Suspect]
     Indication: CORNEAL DISORDER
     Dosage: 1 DF, 1/MONTH
     Route: 050
  2. ORAL ANTIDIABETIC DRUG NOS [Concomitant]
     Indication: DIABETES MELLITUS

REACTIONS (2)
  - PULMONARY OEDEMA [None]
  - BLOOD GLUCOSE INCREASED [None]
